FAERS Safety Report 6050193-8 (Version None)
Quarter: 2009Q1

REPORT INFORMATION
  Report Type: 
  Country: None (occurrence: None)
  Receive Date: 20090122
  Receipt Date: 20090122
  Transmission Date: 20090719
  Serious: Yes (Other)
  Sender: FDA-Public Use
  Company Number: None

PATIENT
  Age: 38 Year
  Sex: Female
  Weight: 71.6683 kg

DRUGS (1)
  1. ULTRAM ER [Suspect]
     Indication: BACK PAIN
     Dosage: 200 MG AS NEEDED PO
     Route: 048
     Dates: start: 20090115

REACTIONS (8)
  - ANXIETY [None]
  - DIZZINESS [None]
  - HEADACHE [None]
  - MALAISE [None]
  - NAUSEA [None]
  - PRESYNCOPE [None]
  - TREMOR [None]
  - VOMITING [None]
